FAERS Safety Report 25173433 (Version 3)
Quarter: 2025Q2

REPORT INFORMATION
  Report Type: Report from Study
  Country: IE (occurrence: IE)
  Receive Date: 20250408
  Receipt Date: 20250604
  Transmission Date: 20250717
  Serious: Yes (Other)
  Sender: NOVARTIS
  Company Number: IE-002147023-NVSC2024IE124701

PATIENT
  Age: 36 Year
  Sex: Female

DRUGS (3)
  1. KESIMPTA [Suspect]
     Active Substance: OFATUMUMAB
     Indication: Relapsing-remitting multiple sclerosis
     Dosage: 20 MG, QMO
     Route: 058
     Dates: start: 20240515
  2. KESIMPTA [Suspect]
     Active Substance: OFATUMUMAB
     Indication: Multiple sclerosis
     Dosage: 20 MG, Q4W
     Route: 058
     Dates: start: 202405, end: 202504
  3. KESIMPTA [Suspect]
     Active Substance: OFATUMUMAB
     Dosage: UNK, QMO (INJECTION)
     Route: 058
     Dates: start: 20240524, end: 20250402

REACTIONS (10)
  - Lower respiratory tract infection [Unknown]
  - Pyrexia [Recovered/Resolved]
  - Oral herpes [Recovering/Resolving]
  - Product availability issue [Not Recovered/Not Resolved]
  - Influenza [Unknown]
  - Illness [Recovered/Resolved]
  - Decreased immune responsiveness [Unknown]
  - Abdominal discomfort [Unknown]
  - Pyrexia [Unknown]
  - Influenza like illness [Recovered/Resolved]

NARRATIVE: CASE EVENT DATE: 20240501
